FAERS Safety Report 10361327 (Version 1)
Quarter: 2014Q3

REPORT INFORMATION
  Report Type: Spontaneous
  Country: US (occurrence: US)
  Receive Date: 20140804
  Receipt Date: 20140804
  Transmission Date: 20150326
  Serious: Yes (Other)
  Sender: FDA-Public Use
  Company Number: US-BAXTER-2014BAX044411

PATIENT
  Age: 54 Year
  Sex: Male

DRUGS (1)
  1. SEVOFLURANE, USP [Suspect]
     Active Substance: SEVOFLURANE
     Indication: ANAESTHESIA PROCEDURE
     Route: 065

REACTIONS (2)
  - Diabetes insipidus [Unknown]
  - Encephalopathy [Unknown]
